FAERS Safety Report 17066574 (Version 1)
Quarter: 2019Q4

REPORT INFORMATION
  Report Type: Spontaneous
  Country: US (occurrence: US)
  Receive Date: 20191024
  Receipt Date: 20191024
  Transmission Date: 20200122
  Serious: No
  Sender: FDA-Public Use
  Company Number: None

PATIENT
  Age: 44 Year
  Sex: Male

DRUGS (4)
  1. MYCOPHENOLIC DR [Concomitant]
     Active Substance: MYCOPHENOLIC ACID
  2. TRADJENTA [Suspect]
     Active Substance: LINAGLIPTIN
     Route: 048
     Dates: start: 201908
  3. PRAVASTATIN. [Concomitant]
     Active Substance: PRAVASTATIN
  4. TACROLIMUS. [Concomitant]
     Active Substance: TACROLIMUS

REACTIONS (7)
  - Artificial crown procedure [None]
  - Renal transplant [None]
  - Toothache [None]
  - Diabetes mellitus [None]
  - Blood cholesterol increased [None]
  - Tooth disorder [None]
  - Root canal infection [None]

NARRATIVE: CASE EVENT DATE: 20191024
